FAERS Safety Report 5775078-3 (Version None)
Quarter: 2008Q2

REPORT INFORMATION
  Report Type: 
  Country: None (occurrence: None)
  Receive Date: 20080616
  Receipt Date: 20080616
  Transmission Date: 20081010
  Serious: No
  Sender: FDA-Public Use
  Company Number: None

PATIENT
  Age: 32 Year
  Sex: Female
  Weight: 117.9352 kg

DRUGS (2)
  1. HYDROXYCHLOROQUINE SULFATE [Suspect]
     Indication: ARTHRITIS
     Dosage: 2 TABLETS ONCE DAY PO
     Route: 048
     Dates: start: 20070914, end: 20070928
  2. HYDROXYCHLOROQUINE SULFATE [Suspect]
     Indication: PSORIASIS
     Dosage: 2 TABLETS ONCE DAY PO
     Route: 048
     Dates: start: 20070914, end: 20070928

REACTIONS (13)
  - ALOPECIA [None]
  - AMENORRHOEA [None]
  - ASTHENIA [None]
  - DECREASED APPETITE [None]
  - DYSGEUSIA [None]
  - FATIGUE [None]
  - MOOD SWINGS [None]
  - NERVOUSNESS [None]
  - PUSTULAR PSORIASIS [None]
  - PYREXIA [None]
  - RASH [None]
  - SKIN EXFOLIATION [None]
  - WEIGHT INCREASED [None]
